FAERS Safety Report 8443879-9 (Version None)
Quarter: 2012Q2

REPORT INFORMATION
  Report Type: 
  Country: None (occurrence: None)
  Receive Date: 20120618
  Receipt Date: 20120611
  Transmission Date: 20120825
  Serious: Yes (Death, Other)
  Sender: FDA-Public Use
  Company Number: US-BAYER-201015437NA

PATIENT
  Age: 81 Year
  Sex: Male
  Weight: 95.238 kg

DRUGS (39)
  1. LISINOPRIL [Concomitant]
     Indication: HYPERTENSION
     Dosage: UNK
     Dates: start: 19900101, end: 20060101
  2. VITAMIN A [Concomitant]
     Dosage: UNK UNK, QD
  3. CARDIOPLEGIA [Concomitant]
  4. PLATELETS [Concomitant]
     Dosage: 8 U, UNK
  5. NITROGLYCERIN [Concomitant]
     Indication: CHEST PAIN
     Dosage: UNK, PRN
     Dates: start: 20050818
  6. COD LIVER OIL [Concomitant]
     Dosage: 30/MI DAILY
  7. HEPARIN [Concomitant]
  8. RED BLOOD CELLS [Concomitant]
     Dosage: 5 U, UNK
  9. FRESH FROZEN PLASMA [Concomitant]
     Dosage: 12 U, UNK
  10. COENZYME Q10 [Concomitant]
     Dosage: UNK, BID
  11. ISOFLURANE [Concomitant]
  12. INSULIN [Concomitant]
  13. ASPIRIN [Concomitant]
     Dosage: UNK
     Dates: start: 19860101, end: 20060101
  14. PRIMATENE MIST [Concomitant]
  15. ASCORBIC ACID [Concomitant]
     Dosage: UNK UNK, QD
  16. VITAMIN E [Concomitant]
     Dosage: UNK UNK, QD
  17. INTEGRILIN [Concomitant]
     Indication: ACUTE CORONARY SYNDROME
     Route: 042
  18. LOPRESSOR [Concomitant]
  19. ISOSORBIDE DINITRATE [Concomitant]
  20. MAXZIDE [Concomitant]
     Dosage: 75/50 MG DAILY
  21. L-CARNITINE [Concomitant]
     Dosage: UNK UNK, QD
  22. HAWTHORN [Concomitant]
     Dosage: UNK UNK, QD
  23. SAM-E [Concomitant]
     Dosage: UNK UNK, QD
  24. PHENYLEPHRINE HCL [Concomitant]
  25. ACTOS [Concomitant]
  26. VERSED [Concomitant]
     Dosage: UNK
     Dates: start: 20060319
  27. TRASYLOL [Suspect]
     Indication: VENTRICULAR SEPTAL DEFECT REPAIR
  28. GLUCOPHAGE [Concomitant]
     Dosage: 500 MG, QD
  29. MULTI-VITAMIN [Concomitant]
     Dosage: UNK UNK, QD
  30. MANNITOL [Concomitant]
  31. ANCEF [Concomitant]
     Dosage: UNK
     Dates: start: 20060319
  32. MAGNESIUM [Concomitant]
     Dosage: UNK UNK, QD
  33. ACIPHEX [Concomitant]
     Dosage: UNK UNK, QD
  34. LASIX [Concomitant]
  35. PROTAMINE SULFATE [Concomitant]
     Dosage: UNK
     Dates: start: 20060319
  36. TRASYLOL [Suspect]
     Indication: CORONARY ARTERY BYPASS
     Dosage: 200 ML (PUMP PRIME) FOLLOWED BY 50 ML/HR
     Route: 042
     Dates: start: 20060319, end: 20060319
  37. TRASYLOL [Suspect]
     Indication: MITRAL VALVE REPAIR
  38. CARBIDOPA [Concomitant]
     Dosage: 10 MG, QD
  39. LIDOCAINE [Concomitant]
     Dosage: 100 MG, UNK

REACTIONS (5)
  - RENAL FAILURE ACUTE [None]
  - INJURY [None]
  - RENAL FAILURE [None]
  - PAIN [None]
  - DEATH [None]
